FAERS Safety Report 25401532 (Version 3)
Quarter: 2025Q3

REPORT INFORMATION
  Report Type: Spontaneous
  Country: JP (occurrence: JP)
  Receive Date: 20250605
  Receipt Date: 20250815
  Transmission Date: 20251020
  Serious: Yes (Death, Other)
  Sender: UCB
  Company Number: JP-UCBJ-CD202507343UCBPHAPROD

PATIENT
  Age: 58 Year
  Sex: Male

DRUGS (2)
  1. LEVETIRACETAM [Suspect]
     Active Substance: LEVETIRACETAM
     Indication: Epilepsy
     Route: 048
  2. VALPROATE SODIUM [Suspect]
     Active Substance: VALPROATE SODIUM
     Indication: Epilepsy

REACTIONS (5)
  - Renal impairment [Fatal]
  - Hepatic function abnormal [Fatal]
  - Metabolic dysfunction-associated steatohepatitis [Fatal]
  - Metabolic dysfunction-associated liver disease [Fatal]
  - Pneumonia aspiration [Unknown]

NARRATIVE: CASE EVENT DATE: 20220101
